FAERS Safety Report 4677146-6 (Version None)
Quarter: 2005Q2

REPORT INFORMATION
  Report Type: 
  Country: None (occurrence: None)
  Receive Date: 20050525
  Receipt Date: 20050525
  Transmission Date: 20051028
  Serious: Yes (Life-Threatening, Hospitalization)
  Sender: FDA-Public Use
  Company Number: None

PATIENT
  Age: 50 Year
  Sex: Male
  Weight: 74.4 kg

DRUGS (2)
  1. ACETAMINOPHEN [Suspect]
  2. IBUPROFEN [Suspect]

REACTIONS (3)
  - NAUSEA [None]
  - SOMNOLENCE [None]
  - VOMITING [None]
